FAERS Safety Report 4597402-X (Version None)
Quarter: 2005Q1

REPORT INFORMATION
  Report Type: 
  Country: None (occurrence: None)
  Receive Date: 20050228
  Receipt Date: 20050228
  Transmission Date: 20050727
  Serious: Yes (Other)
  Sender: FDA-Public Use
  Company Number: None

PATIENT
  Age: 45 Year
  Sex: Male
  Weight: 84.369 kg

DRUGS (2)
  1. WARFARIN 4 MG-8 MG [Suspect]
     Indication: AORTIC STENOSIS
     Dosage: VARIED BRAND ON LAB
     Dates: start: 19990701, end: 19991201
  2. WARFARIN 4 MG-8 MG [Suspect]
     Indication: HEART VALVE REPLACEMENT
     Dosage: VARIED BRAND ON LAB
     Dates: start: 19990701, end: 19991201

REACTIONS (2)
  - INTERNATIONAL NORMALISED RATIO INCREASED [None]
  - PHARMACEUTICAL PRODUCT COMPLAINT [None]
